FAERS Safety Report 21269819 (Version 2)
Quarter: 2022Q3

REPORT INFORMATION
  Report Type: Spontaneous
  Country: CN (occurrence: CN)
  Receive Date: 20220830
  Receipt Date: 20220904
  Transmission Date: 20221027
  Serious: Yes (Other)
  Sender: FDA-Public Use
  Company Number: CN-MLMSERVICE-20220818-3742098-1

PATIENT
  Age: 53 Year
  Sex: Female
  Weight: 44 kg

DRUGS (8)
  1. OXALIPLATIN [Suspect]
     Active Substance: OXALIPLATIN
     Indication: Hepatocellular carcinoma
     Dosage: TACE TREATMENT HAD BEEN PERFORMED THREE TIMES BEFORE
  2. OXALIPLATIN [Suspect]
     Active Substance: OXALIPLATIN
     Indication: Transcatheter arterial chemoembolisation
     Dosage: 100 MG
     Route: 013
  3. EPIRUBICIN [Suspect]
     Active Substance: EPIRUBICIN
     Indication: Hepatocellular carcinoma
     Dosage: TACE TREATMENT HAD BEEN PERFORMED THREE TIMES BEFORE
  4. EPIRUBICIN [Suspect]
     Active Substance: EPIRUBICIN
     Indication: Transcatheter arterial chemoembolisation
     Dosage: 10 MG (MIXED EMULSION OF 5ML IODIZED OIL AND 10 MG EPIRUBICIN)
     Route: 013
  5. IODIZED OIL [Suspect]
     Active Substance: IODIZED OIL
     Indication: Hepatocellular carcinoma
     Dosage: TACE TREATMENT HAD BEEN PERFORMED THREE TIMES BEFORE
  6. IODIZED OIL [Suspect]
     Active Substance: IODIZED OIL
     Indication: Transcatheter arterial chemoembolisation
     Dosage: 5 ML (MIXED EMULSION OF 5ML IODIZED OIL AND 10 MG EPIRUBICIN)
     Route: 013
  7. GELATIN [Suspect]
     Active Substance: GELATIN
     Indication: Hepatocellular carcinoma
     Dosage: UNK
     Route: 013
  8. GELATIN [Suspect]
     Active Substance: GELATIN
     Indication: Transcatheter arterial chemoembolisation

REACTIONS (9)
  - Post embolisation syndrome [Recovered/Resolved]
  - Abdominal pain [Recovered/Resolved]
  - Abdominal distension [Recovered/Resolved]
  - Nausea [Recovered/Resolved]
  - Posterior reversible encephalopathy syndrome [Recovered/Resolved]
  - Headache [Recovered/Resolved]
  - Loss of consciousness [Recovered/Resolved]
  - Visual impairment [Recovered/Resolved]
  - Blood pressure increased [Recovered/Resolved]
